FAERS Safety Report 5081333-5 (Version None)
Quarter: 2006Q3

REPORT INFORMATION
  Report Type: 
  Country: None (occurrence: None)
  Receive Date: 20060810
  Receipt Date: 20060726
  Transmission Date: 20061208
  Serious: Yes (Hospitalization, Disabling)
  Sender: FDA-Public Use
  Company Number: ABX34-06-0347

PATIENT
  Age: 61 Year
  Sex: Female
  Weight: 69.8539 kg

DRUGS (8)
  1. ABRAXANE                         (PACLITAXEL PROTEIN-BOUND PARTICLES) [Suspect]
     Indication: BREAST CANCER METASTATIC
     Dosage: (221 MG, EVERY 21 DAYS), INTRAVENOUS DRIP
     Route: 041
     Dates: start: 20060105, end: 20060705
  2. XELODA [Suspect]
     Indication: BREAST CANCER METASTATIC
     Dosage: (1450 MG ), ORAL
     Route: 048
     Dates: start: 20060105, end: 20060710
  3. NEURONTIN [Concomitant]
  4. COUMADIN [Concomitant]
  5. LASIX [Concomitant]
  6. POTASSIUM             (POTASSIUM) [Concomitant]
  7. EFFEXOR [Concomitant]
  8. MIDODRINE HYDROCHLORIDE [Concomitant]

REACTIONS (7)
  - ATELECTASIS [None]
  - DYSSTASIA [None]
  - GAIT DISTURBANCE [None]
  - LOSS OF PROPRIOCEPTION [None]
  - LUNG INFILTRATION [None]
  - NEUROTOXICITY [None]
  - PLEURAL EFFUSION [None]
